FAERS Safety Report 6646940-4 (Version None)
Quarter: 2010Q1

REPORT INFORMATION
  Report Type: 
  Country: None (occurrence: None)
  Receive Date: 20100323
  Receipt Date: 20100311
  Transmission Date: 20100710
  Serious: Yes (Life-Threatening, Other)
  Sender: FDA-Public Use
  Company Number: FR-BAXTER-2010BH007091

PATIENT
  Age: 28 Year
  Sex: Female

DRUGS (3)
  1. SEVOFLURANE [Suspect]
     Indication: GENERAL ANAESTHESIA
     Route: 055
     Dates: start: 20100309, end: 20100309
  2. HYDROXYZINE [Concomitant]
     Indication: PREMEDICATION
     Route: 065
  3. DIPRIVAN [Concomitant]
     Indication: JUVENILE ARTHRITIS
     Route: 065

REACTIONS (3)
  - CARDIAC ARREST [None]
  - CARDIAC FAILURE [None]
  - VENTRICULAR FIBRILLATION [None]
